FAERS Safety Report 14682968 (Version 1)
Quarter: 2018Q1

REPORT INFORMATION
  Report Type: Spontaneous
  Country: HR (occurrence: HR)
  Receive Date: 20180327
  Receipt Date: 20180327
  Transmission Date: 20180509
  Serious: Yes (Other)
  Sender: FDA-Public Use
  Company Number: HR-BRISTOL-MYERS SQUIBB COMPANY-BMS-2018-026854

PATIENT
  Age: 50 Year
  Sex: Male

DRUGS (5)
  1. AZOLAR [Suspect]
     Active Substance: ARIPIPRAZOLE
     Indication: PRODUCT USED FOR UNKNOWN INDICATION
     Dosage: 30 MG, QD
     Route: 048
  2. NORMABEL [Suspect]
     Active Substance: DIAZEPAM
     Indication: PRODUCT USED FOR UNKNOWN INDICATION
     Dosage: 15 MG, QD
     Route: 048
  3. GLUCOPHAGE [Suspect]
     Active Substance: METFORMIN HYDROCHLORIDE
     Indication: DIABETES MELLITUS
     Dosage: 1000 MG, BID
     Route: 048
  4. TERTENSIF [Concomitant]
     Active Substance: INDAPAMIDE
     Indication: HYPERTENSION
     Dosage: 1.5 MG, UNK
     Route: 048
  5. PRILEN                             /00574902/ [Concomitant]
     Indication: HYPERTENSION
     Route: 048

REACTIONS (24)
  - Hyperhidrosis [Unknown]
  - Anxiety [Unknown]
  - Tremor [Unknown]
  - Muscle spasms [Unknown]
  - Dizziness [Unknown]
  - Headache [Unknown]
  - Dyspnoea [Unknown]
  - Constipation [Unknown]
  - Weight increased [Unknown]
  - Balance disorder [Unknown]
  - Arrhythmia [Unknown]
  - Diarrhoea [Unknown]
  - Decreased appetite [Unknown]
  - Coordination abnormal [Unknown]
  - Libido decreased [Unknown]
  - Micturition disorder [Unknown]
  - Muscle tightness [Unknown]
  - Salivary hypersecretion [Unknown]
  - Vision blurred [Unknown]
  - Myocardial infarction [Unknown]
  - Erythema [Unknown]
  - Feeling drunk [Unknown]
  - Vertigo [Unknown]
  - Depression [Unknown]
